FAERS Safety Report 8183452-3 (Version None)
Quarter: 2012Q1

REPORT INFORMATION
  Report Type: 
  Country: None (occurrence: None)
  Receive Date: 20120305
  Receipt Date: 20120224
  Transmission Date: 20120608
  Serious: Yes (Hospitalization)
  Sender: FDA-Public Use
  Company Number: US-BAYER-2012-011806

PATIENT
  Age: 26 Year
  Sex: Female
  Weight: 82.993 kg

DRUGS (3)
  1. INDOMETHACIN [Concomitant]
     Dosage: 50 MG, UNK
     Route: 048
     Dates: start: 20070113
  2. LEVAQUIN [Concomitant]
     Dosage: 500 MG, UNK
     Route: 048
     Dates: start: 20070116
  3. YASMIN [Suspect]
     Indication: PRODUCT USED FOR UNKNOWN INDICATION
     Dosage: UNK
     Dates: start: 20070117

REACTIONS (7)
  - PULMONARY EMBOLISM [None]
  - HAEMOPTYSIS [None]
  - DYSPNOEA EXERTIONAL [None]
  - CHEST PAIN [None]
  - PAINFUL RESPIRATION [None]
  - PAIN [None]
  - INJURY [None]
